FAERS Safety Report 8178527-9 (Version None)
Quarter: 2012Q1

REPORT INFORMATION
  Report Type: 
  Country: None (occurrence: None)
  Receive Date: 20120301
  Receipt Date: 20120221
  Transmission Date: 20120608
  Serious: Yes (Hospitalization, Other)
  Sender: FDA-Public Use
  Company Number: US-ASTRAZENECA-2011SE75713

PATIENT
  Age: 63 Year
  Sex: Female

DRUGS (1)
  1. NEXIUM [Suspect]
     Route: 048

REACTIONS (11)
  - ABDOMINAL DISCOMFORT [None]
  - PAIN [None]
  - SKELETAL INJURY [None]
  - FALL [None]
  - GASTROINTESTINAL DISORDER [None]
  - DRUG DOSE OMISSION [None]
  - ABDOMINAL WALL INFECTION [None]
  - GASTROINTESTINAL INFECTION [None]
  - MALAISE [None]
  - INJURY [None]
  - VIRAL INFECTION [None]
